FAERS Safety Report 14568873 (Version 1)
Quarter: 2018Q1

REPORT INFORMATION
  Report Type: Spontaneous
  Country: IN (occurrence: IN)
  Receive Date: 20180223
  Receipt Date: 20180223
  Transmission Date: 20180509
  Serious: Yes (Hospitalization, Other)
  Sender: FDA-Public Use
  Company Number: IN-MYLANLABS-2018M1012387

PATIENT
  Age: 29 Year
  Sex: Female

DRUGS (1)
  1. OLANZAPINE. [Suspect]
     Active Substance: OLANZAPINE
     Indication: SCHIZOPHRENIA
     Dosage: RECEIVED OLANZAPINE LONG ACTING INJECTION 405 MG
     Route: 030

REACTIONS (3)
  - Post-injection delirium sedation syndrome [Recovered/Resolved]
  - Respiratory alkalosis [Recovered/Resolved]
  - Tachycardia [Recovered/Resolved]
